FAERS Safety Report 26060078 (Version 1)
Quarter: 2025Q4

REPORT INFORMATION
  Report Type: Spontaneous
  Country: US (occurrence: US)
  Receive Date: 20251118
  Receipt Date: 20251118
  Transmission Date: 20260117
  Serious: Yes (Other)
  Sender: COOPERSURGICAL
  Company Number: US-COOPERSURGICAL, INC.-2025CPS007863

PATIENT
  Sex: Female
  Weight: 72.562 kg

DRUGS (1)
  1. PARAGARD T 380A [Suspect]
     Active Substance: COPPER
     Indication: Contraception
     Dosage: UNK
     Route: 015
     Dates: start: 20140811

REACTIONS (17)
  - Reproductive complication associated with device [Unknown]
  - Surgery [Recovered/Resolved]
  - Device breakage [Not Recovered/Not Resolved]
  - Foreign body in reproductive tract [Not Recovered/Not Resolved]
  - Complication of device removal [Not Recovered/Not Resolved]
  - Emotional distress [Unknown]
  - Procedural pain [Unknown]
  - Post procedural haemorrhage [Unknown]
  - Pollakiuria [Unknown]
  - Urine odour abnormal [Unknown]
  - Dysuria [Unknown]
  - Coital bleeding [Unknown]
  - Device dislocation [Not Recovered/Not Resolved]
  - Abnormal uterine bleeding [Unknown]
  - Back pain [Recovered/Resolved]
  - Heavy menstrual bleeding [Unknown]
  - Dysmenorrhoea [Recovered/Resolved]

NARRATIVE: CASE EVENT DATE: 20210101
